FAERS Safety Report 9281253 (Version 1)
Quarter: 2013Q2

REPORT INFORMATION
  Report Type: Spontaneous
  Country: CA (occurrence: CA)
  Receive Date: 20130509
  Receipt Date: 20130509
  Transmission Date: 20140414
  Serious: Yes (Life-Threatening, Hospitalization, Disabling)
  Sender: FDA-Public Use
  Company Number: CA-TEVA-404033USA

PATIENT
  Age: 11 Year
  Sex: Male
  Weight: 30 kg

DRUGS (3)
  1. BACLOFEN [Suspect]
     Dosage: 120 MILLIGRAM DAILY; FEEDING TUBE
     Route: 050
  2. BACLOFEN [Suspect]
     Route: 065
  3. LEVODOPA [Concomitant]
     Route: 065

REACTIONS (5)
  - Drug withdrawal syndrome [Recovered/Resolved]
  - Hypermetabolism [Recovered/Resolved]
  - Hyperthermia [Recovered/Resolved]
  - Renal failure acute [Recovered/Resolved]
  - Rhabdomyolysis [Recovered/Resolved]
